FAERS Safety Report 17688425 (Version 1)
Quarter: 2020Q2

REPORT INFORMATION
  Report Type: Spontaneous
  Country: US (occurrence: US)
  Receive Date: 20200421
  Receipt Date: 20200421
  Transmission Date: 20200714
  Serious: Yes (Life-Threatening, Hospitalization)
  Sender: FDA-Public Use
  Company Number: None

PATIENT
  Age: 22 Year
  Sex: Male
  Weight: 86.9 kg

DRUGS (1)
  1. HEPARIN INFUSION 50 UNITS / ML [Suspect]
     Active Substance: HEPARIN SODIUM
     Indication: CEREBRAL VENOUS SINUS THROMBOSIS
     Dosage: ?          OTHER FREQUENCY:CONTINUOUS;?
     Route: 041
     Dates: start: 20200416, end: 20200418

REACTIONS (4)
  - Transverse sinus thrombosis [None]
  - Fall [None]
  - Craniocerebral injury [None]
  - Haemorrhage intracranial [None]

NARRATIVE: CASE EVENT DATE: 20200418
